FAERS Safety Report 8432420-2 (Version None)
Quarter: 2012Q2

REPORT INFORMATION
  Report Type: 
  Country: None (occurrence: None)
  Receive Date: 20120613
  Receipt Date: 20120604
  Transmission Date: 20120825
  Serious: Yes (Hospitalization, Other)
  Sender: FDA-Public Use
  Company Number: US-VERTEX PHARMACEUTICALS INC.-AE-2012-008416

PATIENT
  Sex: Male

DRUGS (3)
  1. INCIVEK [Suspect]
     Indication: HEPATITIS C
     Route: 048
     Dates: start: 20110916, end: 20111209
  2. PEG-INTRON [Concomitant]
     Indication: HEPATITIS C
     Dates: start: 20110916, end: 20120302
  3. RIBAVIRIN [Concomitant]
     Indication: HEPATITIS C
     Dates: start: 20110916, end: 20120302

REACTIONS (7)
  - HALLUCINATION [None]
  - FLUID RETENTION [None]
  - CONSTIPATION [None]
  - ABDOMINAL DISTENSION [None]
  - FATIGUE [None]
  - ENCEPHALOPATHY [None]
  - ANAEMIA [None]
